FAERS Safety Report 11447041 (Version 1)
Quarter: 2015Q3

REPORT INFORMATION
  Report Type: Spontaneous
  Country: US (occurrence: US)
  Receive Date: 20150831
  Receipt Date: 20150831
  Transmission Date: 20151125
  Serious: No
  Sender: FDA-Public Use
  Company Number: US-ELI_LILLY_AND_COMPANY-US200902001802

PATIENT
  Age: 60 Year
  Sex: Female

DRUGS (2)
  1. CYMBALTA [Suspect]
     Active Substance: DULOXETINE HYDROCHLORIDE
     Indication: PAIN
     Dosage: 30 MG, DAILY (1/D)
     Dates: start: 200809
  2. LEVOX [Concomitant]
     Dosage: 0.125 MG, UNK
     Dates: start: 1969

REACTIONS (7)
  - Eye irritation [Unknown]
  - Ocular hyperaemia [Unknown]
  - Dry skin [Unknown]
  - Eye oedema [Recovered/Resolved]
  - Epistaxis [Unknown]
  - Peripheral swelling [Recovered/Resolved]
  - Hyperhidrosis [Unknown]

NARRATIVE: CASE EVENT DATE: 2008
